FAERS Safety Report 9419528 (Version 1)
Quarter: 2013Q3

REPORT INFORMATION
  Report Type: Spontaneous
  Country: US (occurrence: None)
  Receive Date: 20130723
  Receipt Date: 20130723
  Transmission Date: 20140515
  Serious: Yes (Death)
  Sender: FDA-Public Use
  Company Number: 20130041

PATIENT
  Age: 50 Year
  Sex: Female

DRUGS (3)
  1. SUBSYS [Suspect]
     Indication: NEOPLASM MALIGNANT
     Route: 060
  2. DURAGESIC [Concomitant]
  3. OXYCODONE IR [Concomitant]

REACTIONS (2)
  - Neoplasm malignant [None]
  - Metastasis [None]
